FAERS Safety Report 25974441 (Version 1)
Quarter: 2025Q4

REPORT INFORMATION
  Report Type: Spontaneous
  Country: US (occurrence: None)
  Receive Date: 20251029
  Receipt Date: 20251029
  Transmission Date: 20260118
  Serious: Yes (Hospitalization)
  Sender: FDA-CTU
  Company Number: None

PATIENT
  Age: 64 Year
  Sex: Male
  Weight: 83.3 kg

DRUGS (2)
  1. DARATUMUMAB\HYALURONIDASE-FIHJ [Suspect]
     Active Substance: DARATUMUMAB\HYALURONIDASE-FIHJ
     Dates: end: 20251013
  2. LENALIDOMIDE [Suspect]
     Active Substance: LENALIDOMIDE
     Dates: end: 20251013

REACTIONS (5)
  - Musculoskeletal chest pain [None]
  - Tachycardia [None]
  - Pulmonary embolism [None]
  - Rib fracture [None]
  - Rib fracture [None]

NARRATIVE: CASE EVENT DATE: 20251018
